FAERS Safety Report 7262400-4 (Version None)
Quarter: 2011Q1

REPORT INFORMATION
  Report Type: 
  Country: None (occurrence: None)
  Receive Date: 20110130
  Receipt Date: 20101117
  Transmission Date: 20110831
  Serious: No
  Sender: FDA-Public Use
  Company Number: US-ABBOTT-10P-163-0686117-00

PATIENT
  Age: 68 Year
  Sex: Female

DRUGS (6)
  1. HYDROCODONE [Concomitant]
     Indication: PAIN
     Route: 048
  2. GENERIC FOR ZAIC [Concomitant]
     Indication: PRODUCT USED FOR UNKNOWN INDICATION
     Route: 048
  3. HUMIRA [Suspect]
     Indication: RHEUMATOID ARTHRITIS
     Dates: start: 20101115
  4. WELLBUTRIN [Concomitant]
     Indication: DEPRESSION
     Route: 048
  5. MELOXICAM [Concomitant]
     Indication: PRODUCT USED FOR UNKNOWN INDICATION
     Route: 048
  6. XANAX [Concomitant]
     Indication: ANXIETY
     Dosage: AT BEDTIME

REACTIONS (1)
  - NAUSEA [None]
